FAERS Safety Report 5899322-7 (Version None)
Quarter: 2008Q3

REPORT INFORMATION
  Report Type: 
  Country: None (occurrence: None)
  Receive Date: 20080924
  Receipt Date: 20080915
  Transmission Date: 20090109
  Serious: Yes (Hospitalization)
  Sender: FDA-Public Use
  Company Number: 2008BI006585

PATIENT
  Age: 45 Year
  Sex: Female

DRUGS (1)
  1. AVONEX [Suspect]
     Indication: MULTIPLE SCLEROSIS
     Dosage: 30 UG;QW;IM
     Route: 030
     Dates: start: 19970901

REACTIONS (14)
  - ASTHENOPIA [None]
  - EMOTIONAL DISORDER [None]
  - HAEMORRHAGE [None]
  - HYSTERECTOMY [None]
  - LIMB INJURY [None]
  - MASS [None]
  - MENOPAUSE [None]
  - MIGRAINE [None]
  - NASAL DISORDER [None]
  - PAIN [None]
  - PHYSICAL ABUSE [None]
  - PSYCHOMOTOR HYPERACTIVITY [None]
  - SINUSITIS [None]
  - SUICIDAL IDEATION [None]
